FAERS Safety Report 24036907 (Version 1)
Quarter: 2024Q3

REPORT INFORMATION
  Report Type: Spontaneous
  Country: US (occurrence: US)
  Receive Date: 20240701
  Receipt Date: 20240701
  Transmission Date: 20241017
  Serious: No
  Sender: FRESENIUS KABI
  Company Number: US-FreseniusKabi-FK202410135

PATIENT
  Age: 52 Year
  Sex: Female
  Weight: 70 kg

DRUGS (10)
  1. ADALIMUMAB-AACF [Suspect]
     Active Substance: ADALIMUMAB\ADALIMUMAB-AACF\ISOPROPYL ALCOHOL
     Indication: Hidradenitis
     Dosage: NDC: ASKED BUT UNKNOWN?LOT: ASKED BUT UNKNOWN ?EXPIRY: ASKED BUT UNKNOWN
     Route: 058
     Dates: start: 20240201
  2. Clindamycin lotion [Concomitant]
     Indication: Product used for unknown indication
     Dosage: LOTION
  3. LORAZEPAM [Concomitant]
     Active Substance: LORAZEPAM
     Indication: Product used for unknown indication
  4. Corticosteroid solution [Concomitant]
     Indication: Product used for unknown indication
     Dosage: SOLUTION
  5. ALBUTEROL [Concomitant]
     Active Substance: ALBUTEROL
     Indication: Product used for unknown indication
     Dosage: NEBULIZER
  6. CHLORHEXIDINE [Concomitant]
     Active Substance: CHLORHEXIDINE
     Indication: Product used for unknown indication
     Dosage: SOLUTION
  7. HYDROCORTISONE [Concomitant]
     Active Substance: HYDROCORTISONE\HYDROCORTISONE ACETATE
     Indication: Product used for unknown indication
     Dosage: OINTMENT
  8. levothyroxine oral [Concomitant]
     Indication: Product used for unknown indication
     Dosage: ORAL
  9. famotidine oral [Concomitant]
     Indication: Product used for unknown indication
     Dosage: ORAL
  10. ATORVASTATIN [Concomitant]
     Active Substance: ATORVASTATIN
     Indication: Product used for unknown indication
     Dosage: ORAL

REACTIONS (4)
  - Drug ineffective [Unknown]
  - Myalgia [Unknown]
  - Arthralgia [Unknown]
  - Loss of therapeutic response [Unknown]
